FAERS Safety Report 11371161 (Version 1)
Quarter: 2015Q3

REPORT INFORMATION
  Report Type: Spontaneous
  Country: US (occurrence: US)
  Receive Date: 20150812
  Receipt Date: 20150812
  Transmission Date: 20151125
  Serious: No
  Sender: FDA-Public Use
  Company Number: US-PFIZER INC-2015264311

PATIENT
  Age: 53 Year
  Sex: Female
  Weight: 87.53 kg

DRUGS (1)
  1. GENOTROPIN [Suspect]
     Active Substance: SOMATROPIN
     Dosage: 0.8 MG, UNK

REACTIONS (3)
  - Fatigue [Unknown]
  - Irritability [Unknown]
  - Road traffic accident [Unknown]
